FAERS Safety Report 9352788 (Version 1)
Quarter: 2013Q2

REPORT INFORMATION
  Report Type: Spontaneous
  Country: US (occurrence: None)
  Receive Date: 20130614
  Receipt Date: 20130614
  Transmission Date: 20140414
  Serious: Yes (Other)
  Sender: FDA-Public Use
  Company Number: None

PATIENT
  Age: 76 Year
  Sex: Male
  Weight: 65.77 kg

DRUGS (1)
  1. LEVOFLOXACIN [Suspect]
     Indication: PNEUMONIA
     Dosage: 1 TABLET DAILY DAILY PO
     Route: 048
     Dates: start: 20130519, end: 20130523

REACTIONS (6)
  - Blood disorder [None]
  - Platelet count decreased [None]
  - Weight decreased [None]
  - Rash [None]
  - Headache [None]
  - Confusional state [None]
